FAERS Safety Report 17705405 (Version 1)
Quarter: 2020Q2

REPORT INFORMATION
  Report Type: Spontaneous
  Country: US (occurrence: US)
  Receive Date: 20200424
  Receipt Date: 20200424
  Transmission Date: 20200714
  Serious: No
  Sender: FDA-Public Use
  Company Number: US-AMGEN-USASP2020064939

PATIENT
  Age: 34 Year
  Sex: Female
  Weight: 65.77 kg

DRUGS (1)
  1. BLINCYTO [Suspect]
     Active Substance: BLINATUMOMAB
     Indication: ACUTE LYMPHOCYTIC LEUKAEMIA
     Dosage: UNK, 6 VIALS OF BLINCYTO 35MCG VIALS
     Route: 065

REACTIONS (1)
  - Product preparation error [Unknown]
